FAERS Safety Report 17237724 (Version 1)
Quarter: 2020Q1

REPORT INFORMATION
  Report Type: Spontaneous
  Country: FR (occurrence: FR)
  Receive Date: 20200106
  Receipt Date: 20200106
  Transmission Date: 20200409
  Serious: Yes (Other)
  Sender: FDA-Public Use
  Company Number: FR-MYLANLABS-2020M1001148

PATIENT
  Age: 66 Year
  Sex: Female
  Weight: 68.9 kg

DRUGS (5)
  1. NEORAL [Suspect]
     Active Substance: CYCLOSPORINE
     Indication: IMMUNOSUPPRESSION
     Dosage: 80 MILLIGRAM, QD
     Route: 048
  2. CELLCEPT [Concomitant]
     Active Substance: MYCOPHENOLATE MOFETIL\MYCOPHENOLATE MOFETIL HYDROCHLORIDE
     Dosage: UNK
  3. PREDNISOLONE. [Suspect]
     Active Substance: PREDNISOLONE
     Indication: IMMUNOSUPPRESSION
     Dosage: 70 MILLIGRAM, QD
     Route: 048
     Dates: start: 20010820
  4. SOLU-MEDROL [Suspect]
     Active Substance: METHYLPREDNISOLONE SODIUM SUCCINATE
     Indication: IMMUNOSUPPRESSION
     Dosage: 1000 MILLIGRAM, QD
     Route: 042
     Dates: start: 20010816, end: 20010819
  5. SIMULECT [Concomitant]
     Active Substance: BASILIXIMAB
     Dosage: UNK

REACTIONS (1)
  - Steroid diabetes [Not Recovered/Not Resolved]

NARRATIVE: CASE EVENT DATE: 2001
